FAERS Safety Report 12280920 (Version 1)
Quarter: 2016Q2

REPORT INFORMATION
  Report Type: Spontaneous
  Country: None (occurrence: None)
  Receive Date: 20160418
  Receipt Date: 20160418
  Transmission Date: 20160815
  Serious: No
  Sender: FDA-Public Use
  Company Number: None

PATIENT
  Age: 46 Year
  Sex: Female
  Weight: 65.77 kg

DRUGS (4)
  1. B2 [Concomitant]
  2. ZECUITY [Suspect]
     Active Substance: SUMATRIPTAN SUCCINATE
     Indication: MIGRAINE
     Dosage: AS NEEDED APPLIED AS MEDICATED PATCH TO SKIN
     Dates: start: 20160101, end: 20160101
  3. OTHER MIGRAINE PRESCRIPTIONS [Concomitant]
  4. COQ10 [Concomitant]
     Active Substance: UBIDECARENONE

REACTIONS (3)
  - Drug ineffective [None]
  - Product adhesion issue [None]
  - Application site scar [None]

NARRATIVE: CASE EVENT DATE: 20160101
